FAERS Safety Report 9723139 (Version 1)
Quarter: 2013Q4

REPORT INFORMATION
  Report Type: Spontaneous
  Country: US (occurrence: None)
  Receive Date: 20131127
  Receipt Date: 20131127
  Transmission Date: 20140711
  Serious: Yes (Disabling)
  Sender: FDA-Public Use
  Company Number: None

PATIENT
  Age: 50 Year
  Sex: Male
  Weight: 79.38 kg

DRUGS (5)
  1. LANSOPRAZOLE [Suspect]
     Indication: GASTROOESOPHAGEAL REFLUX DISEASE
     Dosage: 1 DAY NPO; 1 IN A.M.; BY MOUTH
     Route: 048
     Dates: start: 20131106, end: 20131108
  2. LOSARTIN [Concomitant]
  3. HYDROCODONE [Concomitant]
  4. SIMVASTATIN [Concomitant]
  5. VIT. D [Concomitant]

REACTIONS (2)
  - Gastrointestinal disorder [None]
  - Product substitution issue [None]
